FAERS Safety Report 8466796 (Version 3)
Quarter: 2014Q2

REPORT INFORMATION
  Report Type: Spontaneous
  Country: US (occurrence: US)
  Receive Date: 20120320
  Receipt Date: 20140428
  Transmission Date: 20141212
  Serious: Yes (Hospitalization, Other)
  Sender: FDA-Public Use
  Company Number: US-BAYER-2012-023884

PATIENT
  Age: 26 Year
  Sex: Female
  Weight: 47.62 kg

DRUGS (5)
  1. OCELLA [Suspect]
     Dosage: UNK
     Dates: start: 2001, end: 2002
  2. PRO-AIR [Concomitant]
     Dosage: UNK
     Dates: start: 20090317
  3. TAMIFLU [Concomitant]
     Dosage: UNK
     Dates: start: 20090317
  4. MEDROL [METHYLPREDNISOLONE ACETATE] [Concomitant]
     Dosage: UNK
     Dates: start: 20090317
  5. XOPENEX [Concomitant]
     Dosage: UNK
     Dates: start: 20090317

REACTIONS (9)
  - Cholecystectomy [None]
  - Gallbladder disorder [None]
  - Sphincter of Oddi dysfunction [None]
  - Emotional distress [None]
  - Anhedonia [None]
  - Anxiety [None]
  - General physical health deterioration [None]
  - Injury [None]
  - Pain [None]
